FAERS Safety Report 7206738-5 (Version None)
Quarter: 2011Q1

REPORT INFORMATION
  Report Type: 
  Country: None (occurrence: None)
  Receive Date: 20110103
  Receipt Date: 20101229
  Transmission Date: 20110831
  Serious: Yes (Hospitalization, Disabling)
  Sender: FDA-Public Use
  Company Number: NO-PFIZER INC-2010181206

PATIENT
  Age: 36 Year
  Sex: Female

DRUGS (3)
  1. YASMIN [Suspect]
     Indication: DYSFUNCTIONAL UTERINE BLEEDING
     Dosage: 1 DF (DAILY DOSE), , ORAL
     Route: 048
     Dates: start: 20070919, end: 20080101
  2. YASMIN [Suspect]
     Indication: CONTRACEPTION
     Route: 048
     Dates: end: 20080801
  3. DEPO-PROVERA [Suspect]
     Indication: CONTRACEPTION
     Dates: start: 20061101, end: 20071215

REACTIONS (8)
  - HYPOAESTHESIA [None]
  - MONOPARESIS [None]
  - HYPOAESTHESIA FACIAL [None]
  - CEREBRAL INFARCTION [None]
  - NAUSEA [None]
  - HEADACHE [None]
  - DIZZINESS [None]
  - APHASIA [None]
